FAERS Safety Report 8123330-9 (Version None)
Quarter: 2012Q1

REPORT INFORMATION
  Report Type: 
  Country: None (occurrence: None)
  Receive Date: 20120208
  Receipt Date: 20120202
  Transmission Date: 20120608
  Serious: Yes (Life-Threatening)
  Sender: FDA-Public Use
  Company Number: JP-COVIDIEN/TYCO HEALTHCARE/MALLINCKRODT-T201200504

PATIENT
  Age: 14 Year
  Sex: Female

DRUGS (2)
  1. CHLORPHENIRAMINE MALEATE [Suspect]
     Indication: ANAPHYLACTOID REACTION
     Dosage: UNK
     Route: 042
     Dates: start: 20120114, end: 20120114
  2. OPTIRAY 160 [Suspect]
     Indication: COMPUTERISED TOMOGRAM
     Dosage: 83 ML, SINGLE
     Route: 042
     Dates: start: 20120114, end: 20120114

REACTIONS (1)
  - ANAPHYLACTIC SHOCK [None]
